FAERS Safety Report 8071939-3 (Version None)
Quarter: 2012Q1

REPORT INFORMATION
  Report Type: 
  Country: None (occurrence: None)
  Receive Date: 20120124
  Receipt Date: 20120124
  Transmission Date: 20120608
  Serious: Yes (Disabling)
  Sender: FDA-Public Use
  Company Number: None

PATIENT
  Age: 54 Year
  Sex: Female
  Weight: 131.5431 kg

DRUGS (2)
  1. RELAFEN [Concomitant]
  2. LEVAQUIN [Suspect]
     Indication: BRONCHITIS
     Dosage: 500 MG. 1X DAY BY MOUTH
     Route: 048
     Dates: start: 20110226, end: 20110301

REACTIONS (1)
  - MENISCUS LESION [None]
